FAERS Safety Report 5533284-7 (Version None)
Quarter: 2007Q4

REPORT INFORMATION
  Report Type: 
  Country: None (occurrence: None)
  Receive Date: 20071130
  Receipt Date: 20071130
  Transmission Date: 20080405
  Serious: Yes (Other)
  Sender: FDA-Public Use
  Company Number: None

PATIENT
  Age: 47 Year
  Sex: Female
  Weight: 113.3993 kg

DRUGS (1)
  1. CHANTIX [Suspect]
     Indication: SMOKING CESSATION THERAPY
     Dosage: 1MG TAB   1/2 TAB X 7 DAYS  PO;   1MG -   1/2 TAB BID X 7 DA  PO
     Route: 048
     Dates: start: 20070921, end: 20070928

REACTIONS (3)
  - COLD SWEAT [None]
  - NIGHTMARE [None]
  - PALPITATIONS [None]
